FAERS Safety Report 8552273-1 (Version None)
Quarter: 2012Q3

REPORT INFORMATION
  Report Type: 
  Country: None (occurrence: None)
  Receive Date: 20120723
  Receipt Date: 20120723
  Transmission Date: 20120928
  Serious: Yes (Death)
  Sender: FDA-Public Use
  Company Number: None

PATIENT
  Age: 73 Year
  Sex: Female
  Weight: 72.1219 kg

DRUGS (1)
  1. NEULASTA [Suspect]

REACTIONS (4)
  - WHITE BLOOD CELL COUNT INCREASED [None]
  - DRUG DOSE OMISSION [None]
  - RESUSCITATION [None]
  - DIZZINESS [None]
